FAERS Safety Report 25014261 (Version 2)
Quarter: 2025Q2

REPORT INFORMATION
  Report Type: Report from Study
  Country: US (occurrence: US)
  Receive Date: 20250226
  Receipt Date: 20250415
  Transmission Date: 20250716
  Serious: Yes (Hospitalization)
  Sender: GILEAD
  Company Number: US-GILEAD-2024-0697247

PATIENT
  Sex: Female
  Weight: 74.83 kg

DRUGS (6)
  1. AMBRISENTAN [Suspect]
     Active Substance: AMBRISENTAN
     Indication: Pulmonary arterial hypertension
     Route: 048
     Dates: start: 20100204
  2. AMBRISENTAN [Suspect]
     Active Substance: AMBRISENTAN
     Indication: Pulmonary hypertension
     Dosage: 10 MG, QD
     Route: 065
     Dates: start: 20101001
  3. WINREVAIR [Concomitant]
     Active Substance: SOTATERCEPT-CSRK
  4. UPTRAVI [Concomitant]
     Active Substance: SELEXIPAG
     Route: 065
  5. UPTRAVI [Concomitant]
     Active Substance: SELEXIPAG
     Dosage: 600 UG, BID
     Route: 065
  6. ADCIRCA [Concomitant]
     Active Substance: TADALAFIL

REACTIONS (5)
  - Dyspnoea [Unknown]
  - Arthralgia [Not Recovered/Not Resolved]
  - Fluid retention [Unknown]
  - Myalgia [Not Recovered/Not Resolved]
  - Unevaluable event [Recovered/Resolved]
